FAERS Safety Report 16545827 (Version 1)
Quarter: 2019Q3

REPORT INFORMATION
  Report Type: Spontaneous
  Country: AR (occurrence: AR)
  Receive Date: 20190709
  Receipt Date: 20190709
  Transmission Date: 20191004
  Serious: Yes (Other)
  Sender: FDA-Public Use
  Company Number: AR-PFIZER INC-2019137642

PATIENT
  Age: 76 Year
  Sex: Female

DRUGS (2)
  1. IBRANCE [Suspect]
     Active Substance: PALBOCICLIB
     Indication: BREAST CANCER METASTATIC
     Dosage: 125 MG, CYCLIC
     Dates: start: 20180824
  2. FULVESTRANT. [Concomitant]
     Active Substance: FULVESTRANT

REACTIONS (10)
  - Bone disorder [Unknown]
  - Schizophrenia [Unknown]
  - Bronchitis [Recovering/Resolving]
  - Oropharyngeal pain [Unknown]
  - Rhinorrhoea [Unknown]
  - Tonsillitis [Unknown]
  - Influenza [Unknown]
  - Liver injury [Unknown]
  - Headache [Unknown]
  - Neoplasm progression [Unknown]
